FAERS Safety Report 15918918 (Version 1)
Quarter: 2019Q1

REPORT INFORMATION
  Report Type: Spontaneous
  Country: FR (occurrence: FR)
  Receive Date: 20190205
  Receipt Date: 20190205
  Transmission Date: 20190417
  Serious: Yes (Other)
  Sender: FDA-Public Use
  Company Number: FR-MYLANLABS-2019M1008807

PATIENT
  Sex: Female

DRUGS (4)
  1. DOCETAXEL. [Suspect]
     Active Substance: DOCETAXEL
     Indication: TRIPLE NEGATIVE BREAST CANCER
     Dosage: UNK, CYCLIC (FOUR CYCLES, (T: 100 MG/M{SUP}2{/SUP}) Q.3 WEEKS)
  2. FLUOROURACIL. [Suspect]
     Active Substance: FLUOROURACIL
     Indication: TRIPLE NEGATIVE BREAST CANCER
     Dosage: 500 MG, CYCLIC (FOUR CYCLES,MG/M{SUP}2{/SUP}, Q.3 WEEKS)
  3. EPIRUBICIN [Suspect]
     Active Substance: EPIRUBICIN
     Indication: TRIPLE NEGATIVE BREAST CANCER
     Dosage: 100 MG, CYCLIC (FOUR CYCLES,MG/M{SUP}2{/SUP}, Q.3 WEEKS)
  4. CYCLOPHOSPHAMIDE. [Suspect]
     Active Substance: CYCLOPHOSPHAMIDE
     Indication: TRIPLE NEGATIVE BREAST CANCER
     Dosage: 500 MG, CYCLIC (FOUR CYCLES,MG/M{SUP}2{/SUP}, Q.3 WEEKS)

REACTIONS (1)
  - Skin toxicity [Unknown]
